FAERS Safety Report 13028632 (Version 1)
Quarter: 2016Q4

REPORT INFORMATION
  Report Type: Spontaneous
  Country: SE (occurrence: SE)
  Receive Date: 20161214
  Receipt Date: 20161214
  Transmission Date: 20170207
  Serious: Yes (Other)
  Sender: FDA-Public Use
  Company Number: SE-PFIZER INC-2016571750

PATIENT
  Age: 78 Year
  Sex: Female

DRUGS (4)
  1. BISOPROLOL [Concomitant]
     Active Substance: BISOPROLOL
     Dosage: UNK
  2. DALACIN [Suspect]
     Active Substance: CLINDAMYCIN
     Indication: PERICARDITIS INFECTIVE
     Dosage: UNK
     Dates: start: 2016, end: 201610
  3. CLAFORAN [Suspect]
     Active Substance: CEFOTAXIME SODIUM
     Indication: PERICARDITIS INFECTIVE
     Dates: start: 2016, end: 2016
  4. CIPROFLOXACIN. [Concomitant]
     Active Substance: CIPROFLOXACIN
     Dosage: UNK
     Dates: start: 2016

REACTIONS (4)
  - Skin exfoliation [Recovered/Resolved]
  - Dermatitis allergic [Recovered/Resolved]
  - Tachycardia [Recovered/Resolved]
  - Peripheral swelling [Recovered/Resolved]

NARRATIVE: CASE EVENT DATE: 2016
